FAERS Safety Report 6231346-2 (Version None)
Quarter: 2009Q2

REPORT INFORMATION
  Report Type: 
  Country: None (occurrence: None)
  Receive Date: 20090616
  Receipt Date: 20090601
  Transmission Date: 20091009
  Serious: Yes (Other)
  Sender: FDA-Public Use
  Company Number: IT-GENENTECH-284604

PATIENT

DRUGS (7)
  1. MABTHERA [Suspect]
     Indication: MANTLE CELL LYMPHOMA
  2. CYCLOPHOSPHAMIDE [Suspect]
     Indication: MANTLE CELL LYMPHOMA
  3. VINCRISTINE [Suspect]
     Indication: MANTLE CELL LYMPHOMA
  4. DOXORUBICIN HCL [Suspect]
     Indication: MANTLE CELL LYMPHOMA
  5. DEXAMETHASONE [Suspect]
     Indication: MANTLE CELL LYMPHOMA
  6. METHOTREXATE [Suspect]
     Indication: MANTLE CELL LYMPHOMA
  7. CYTARABINE [Suspect]
     Indication: MANTLE CELL LYMPHOMA

REACTIONS (2)
  - CATHETER THROMBOSIS [None]
  - HAEMATOTOXICITY [None]
